FAERS Safety Report 6727826-3 (Version None)
Quarter: 2010Q2

REPORT INFORMATION
  Report Type: 
  Country: None (occurrence: None)
  Receive Date: 20100512
  Receipt Date: 20100503
  Transmission Date: 20101027
  Serious: Yes (Other)
  Sender: FDA-Public Use
  Company Number: DSA_42777_2010

PATIENT
  Sex: Male

DRUGS (4)
  1. XENAZINE [Suspect]
     Dosage: (25 MG QID ORAL)
     Route: 048
     Dates: start: 20091207, end: 20100218
  2. ZOLOFT [Concomitant]
  3. ACTOS [Concomitant]
  4. INSULIN [Concomitant]

REACTIONS (7)
  - APATHY [None]
  - FEELING JITTERY [None]
  - HEART RATE INCREASED [None]
  - MALAISE [None]
  - NAUSEA [None]
  - SUICIDAL IDEATION [None]
  - VOMITING [None]
